FAERS Safety Report 23398249 (Version 1)
Quarter: 2024Q1

REPORT INFORMATION
  Report Type: Spontaneous
  Country: US (occurrence: US)
  Receive Date: 20240112
  Receipt Date: 20240112
  Transmission Date: 20240410
  Serious: No
  Sender: FDA-Public Use
  Company Number: US-PFIZER INC-202400009310

PATIENT
  Age: 20 Year
  Sex: Female

DRUGS (2)
  1. METHOTREXATE SODIUM [Suspect]
     Active Substance: METHOTREXATE SODIUM
     Indication: Alopecia areata
     Dosage: UNK
  2. PREDNISONE [Suspect]
     Active Substance: PREDNISONE
     Dosage: UNK

REACTIONS (4)
  - Pharyngitis streptococcal [Unknown]
  - Guttate psoriasis [Unknown]
  - Off label use [Unknown]
  - Drug ineffective for unapproved indication [Unknown]
